FAERS Safety Report 17727794 (Version 1)
Quarter: 2020Q2

REPORT INFORMATION
  Report Type: Spontaneous
  Country: US (occurrence: US)
  Receive Date: 20200430
  Receipt Date: 20200430
  Transmission Date: 20200714
  Serious: Yes (Other)
  Sender: FDA-Public Use
  Company Number: US-PFIZER INC-2020172717

PATIENT
  Age: 70 Year
  Sex: Male
  Weight: 119.29 kg

DRUGS (2)
  1. LEVEMIR [Concomitant]
     Active Substance: INSULIN DETEMIR
     Indication: DIABETES MELLITUS
     Dosage: 80 DF, 1X/DAY (1 DF = 1 UNITS)
     Dates: end: 202003
  2. LYRICA [Suspect]
     Active Substance: PREGABALIN
     Indication: LIMB DISCOMFORT
     Dosage: 75 MG, DAILY
     Route: 048

REACTIONS (1)
  - Blood glucose increased [Recovered/Resolved]
